FAERS Safety Report 7677095-5 (Version None)
Quarter: 2011Q3

REPORT INFORMATION
  Report Type: 
  Country: None (occurrence: None)
  Receive Date: 20110811
  Receipt Date: 20110729
  Transmission Date: 20111222
  Serious: Yes (Other)
  Sender: FDA-Public Use
  Company Number: CA-JNJFOC-20100704408

PATIENT
  Sex: Female
  Weight: 64.86 kg

DRUGS (21)
  1. REMICADE [Suspect]
     Route: 042
     Dates: start: 20101025
  2. CALCIUM CARBONATE [Concomitant]
  3. NITROGLYCERIN [Concomitant]
     Indication: CHEST DISCOMFORT
     Route: 060
  4. LORAZEPAM [Concomitant]
  5. FLOVENT [Concomitant]
  6. SIMVASTATIN [Concomitant]
     Route: 048
  7. MESALAMINE [Concomitant]
     Dosage: DOSGING REPORTED AS 500 MG, 1500 QID
     Route: 048
  8. ALBUTEROL [Concomitant]
  9. AZATHIOPRINE [Concomitant]
  10. SYNTHROID [Concomitant]
     Route: 048
  11. ASAPHEN [Concomitant]
     Route: 048
  12. MESALAMINE [Concomitant]
     Dosage: 2GM/60 GM RECTAL SUSPENSION 1, QD, PRN
     Route: 054
  13. PANTOPRAZOLE SODIUM [Concomitant]
     Route: 048
  14. BROMAZEPAM [Concomitant]
  15. REMICADE [Suspect]
     Indication: COLITIS ULCERATIVE
     Route: 042
     Dates: start: 20100408
  16. PREDNISONE [Concomitant]
     Route: 048
  17. PROCHLORPERAZINE [Concomitant]
  18. LYRICA [Concomitant]
  19. MESALAMINE [Concomitant]
  20. MESALAMINE [Concomitant]
  21. VITAMIN D [Concomitant]

REACTIONS (11)
  - ALOPECIA [None]
  - NAUSEA [None]
  - ASTHENIA [None]
  - INFUSION RELATED REACTION [None]
  - FEELING ABNORMAL [None]
  - PRESYNCOPE [None]
  - NAIL DISCOLOURATION [None]
  - HEADACHE [None]
  - VISION BLURRED [None]
  - RESTLESSNESS [None]
  - FATIGUE [None]
